FAERS Safety Report 5287242-0 (Version None)
Quarter: 2007Q1

REPORT INFORMATION
  Report Type: 
  Country: None (occurrence: None)
  Receive Date: 20070116
  Receipt Date: 20061010
  Transmission Date: 20070707
  Serious: No
  Sender: FDA-Public Use
  Company Number: 2006SP003610

PATIENT
  Age: 77 Year
  Sex: Female
  Weight: 77.1115 kg

DRUGS (10)
  1. LUNESTA [Suspect]
     Indication: SLEEP DISORDER
     Dosage: 1 MG; HS; ORAL
     Route: 048
     Dates: start: 20061007
  2. COZAAR [Concomitant]
  3. MONOPRIL [Concomitant]
  4. PANTOPRAZOLE SODIUM [Concomitant]
  5. METFORMIN HCL [Concomitant]
  6. CALCIUM [Concomitant]
  7. VITAMIN D [Concomitant]
  8. ZOLOFT [Concomitant]
  9. PLAVIX [Concomitant]
  10. XANAX [Concomitant]

REACTIONS (3)
  - DRUG INEFFECTIVE [None]
  - FAECES DISCOLOURED [None]
  - MIDDLE INSOMNIA [None]
